FAERS Safety Report 19380604 (Version 2)
Quarter: 2021Q4

REPORT INFORMATION
  Report Type: Spontaneous
  Country: US (occurrence: US)
  Receive Date: 20210607
  Receipt Date: 20211210
  Transmission Date: 20220303
  Serious: Yes (Other)
  Sender: FDA-Public Use
  Company Number: US-009507513-1811USA008823

PATIENT
  Sex: Male

DRUGS (7)
  1. ZOSTAVAX [Suspect]
     Active Substance: VARICELLA-ZOSTER VIRUS STRAIN OKA/MERCK LIVE ANTIGEN
     Indication: Prophylaxis
     Dosage: .65 MILLILITER
     Route: 058
     Dates: start: 20131024
  2. MOTRIN [Suspect]
     Active Substance: IBUPROFEN
     Indication: Pain
  3. STERILE DILUENT (WATER) [Suspect]
     Active Substance: WATER
     Indication: Prophylaxis
     Dosage: 0.65 MILLILITER
     Route: 058
     Dates: start: 20131024
  4. LIPITOR [Concomitant]
     Active Substance: ATORVASTATIN CALCIUM
     Indication: Hyperlipidaemia
     Dosage: 1 TABLET, DAILY
     Route: 048
  5. PROSCAR [Concomitant]
     Active Substance: FINASTERIDE
     Indication: Benign prostatic hyperplasia
     Dosage: 1 TABLET, DAILY
  6. INFLUENZA VIRUS VACCINE [Concomitant]
     Active Substance: INFLUENZA VIRUS VACCINE
     Indication: Prophylaxis
     Dosage: UNK
     Dates: start: 20131024
  7. FLEXERIL [Concomitant]
     Active Substance: CYCLOBENZAPRINE HYDROCHLORIDE
     Indication: Muscle spasms
     Dosage: 1 TABLET (5 MG TOTAL) 3 (THREE) TIMES DAILY AS NEEDED
     Route: 048
     Dates: start: 20170124, end: 20170203

REACTIONS (19)
  - Macular degeneration [Unknown]
  - Erectile dysfunction [Unknown]
  - Bell^s palsy [Unknown]
  - Vaccination failure [Unknown]
  - Post herpetic neuralgia [Unknown]
  - Renal cyst [Unknown]
  - Tendonitis [Unknown]
  - Muscle spasms [Unknown]
  - Urinary tract infection [Unknown]
  - Haematuria [Unknown]
  - Fatigue [Unknown]
  - Plantar fasciitis [Unknown]
  - Insomnia [Unknown]
  - Dysuria [Unknown]
  - Gastrooesophageal reflux disease [Unknown]
  - Back pain [Unknown]
  - Drug ineffective [Unknown]
  - Speech disorder [Unknown]
  - Herpes zoster [Unknown]

NARRATIVE: CASE EVENT DATE: 20170125
